FAERS Safety Report 9256250 (Version 1)
Quarter: 2013Q2

REPORT INFORMATION
  Report Type: Spontaneous
  Country: US (occurrence: US)
  Receive Date: 20130425
  Receipt Date: 20130425
  Transmission Date: 20140414
  Serious: No
  Sender: FDA-Public Use
  Company Number: US-AMGEN-USASP2012082836

PATIENT
  Age: 53 Year
  Sex: Female
  Weight: 47.62 kg

DRUGS (3)
  1. NEUPOGEN [Suspect]
     Indication: PRODUCT USED FOR UNKNOWN INDICATION
     Dosage: 200 MUG, ON DAYS 1 AND 8 OF HER CHEMO CYCLE
     Route: 030
     Dates: start: 20120223
  2. NEULASTA [Suspect]
     Indication: PRODUCT USED FOR UNKNOWN INDICATION
     Dosage: 06 MG, ON DAY 21 OF CHEMO CYCLE
     Route: 030
     Dates: start: 20120223
  3. CHEMOTHERAPEUTICS [Concomitant]
     Indication: BREAST CANCER
     Dosage: UNK

REACTIONS (2)
  - Weight decreased [Unknown]
  - Incorrect route of drug administration [Unknown]
